FAERS Safety Report 11301729 (Version 1)
Quarter: 2015Q3

REPORT INFORMATION
  Report Type: Spontaneous
  Country: US (occurrence: US)
  Receive Date: 20150722
  Receipt Date: 20150722
  Transmission Date: 20151125
  Serious: No
  Sender: FDA-Public Use
  Company Number: US-ELI_LILLY_AND_COMPANY-US200904000978

PATIENT
  Age: 30 Year
  Sex: Female
  Weight: 86.17 kg

DRUGS (5)
  1. HUMATROPE [Suspect]
     Active Substance: SOMATROPIN
     Dosage: 1.6 MG, DAILY (1/D)
  2. THYROID [Concomitant]
     Active Substance: LEVOTHYROXINE\LIOTHYRONINE
     Indication: HYPOTHYROIDISM
     Dosage: 222 UG, DAILY (1/D)
  3. HUMATROPE [Suspect]
     Active Substance: SOMATROPIN
     Indication: HYPOTHALAMO-PITUITARY DISORDER
     Dosage: 1.4 MG, DAILY (1/D)
     Dates: start: 2004
  4. ESTROGEN NOS [Concomitant]
     Active Substance: ESTROGENS
     Indication: MENOPAUSE
  5. LIPITOR [Concomitant]
     Active Substance: ATORVASTATIN CALCIUM
     Indication: BLOOD CHOLESTEROL INCREASED

REACTIONS (9)
  - Dyspnoea [Unknown]
  - Blood cholesterol increased [Unknown]
  - Drug ineffective [Unknown]
  - Fluid retention [Unknown]
  - Arthropathy [Unknown]
  - Weight increased [Not Recovered/Not Resolved]
  - Blood glucose decreased [Unknown]
  - Food craving [Unknown]
  - Insulin resistance [Unknown]

NARRATIVE: CASE EVENT DATE: 2006
